FAERS Safety Report 24358229 (Version 1)
Quarter: 2024Q3

REPORT INFORMATION
  Report Type: Spontaneous
  Country: FR (occurrence: FR)
  Receive Date: 20240924
  Receipt Date: 20240924
  Transmission Date: 20241016
  Serious: Yes (Hospitalization, Other)
  Sender: ELI LILLY AND CO
  Company Number: FR-ELI_LILLY_AND_COMPANY-FR202409009531

PATIENT
  Age: 44 Year

DRUGS (3)
  1. ALIMTA [Suspect]
     Active Substance: PEMETREXED DISODIUM
     Indication: Lung neoplasm
     Dosage: UNK UNK, UNKNOWN
     Route: 065
     Dates: start: 20240827
  2. CISPLATIN [Concomitant]
     Active Substance: CISPLATIN
     Indication: Lung neoplasm
     Dosage: UNK
     Dates: start: 20240827
  3. NIVOLUMAB [Concomitant]
     Active Substance: NIVOLUMAB
     Indication: Lung neoplasm
     Dosage: UNK
     Dates: start: 20240827

REACTIONS (6)
  - Rash maculo-papular [Recovering/Resolving]
  - Jugular vein thrombosis [Recovered/Resolved]
  - Incorrect drug administration rate [Unknown]
  - Inflammation [Unknown]
  - Hyperthermia [Unknown]
  - Nausea [Unknown]

NARRATIVE: CASE EVENT DATE: 20240827
